FAERS Safety Report 9207002 (Version 1)
Quarter: 2013Q2

REPORT INFORMATION
  Report Type: Spontaneous
  Country: US (occurrence: None)
  Receive Date: 20130402
  Receipt Date: 20130402
  Transmission Date: 20140414
  Serious: Yes (Other)
  Sender: FDA-Public Use
  Company Number: None

PATIENT
  Sex: Male
  Weight: 88 kg

DRUGS (2)
  1. LOVAZA [Suspect]
     Indication: MYOCARDIAL INFARCTION
     Dosage: 4
     Dates: start: 201009, end: 20130130
  2. ATENOLOL [Suspect]
     Dosage: 1
     Dates: start: 200009

REACTIONS (1)
  - Blood triglycerides increased [None]
